FAERS Safety Report 6803252-3 (Version None)
Quarter: 2010Q2

REPORT INFORMATION
  Report Type: 
  Country: None (occurrence: None)
  Receive Date: 20100628
  Receipt Date: 20100514
  Transmission Date: 20101027
  Serious: Yes (Other)
  Sender: FDA-Public Use
  Company Number: US-BAXTER-2010BH003759

PATIENT
  Age: 45 Year
  Sex: Male
  Weight: 75 kg

DRUGS (6)
  1. HEPARIN SODIUM [Suspect]
     Indication: DRUG USE FOR UNKNOWN INDICATION
     Route: 042
     Dates: start: 20080612, end: 20080726
  2. HEPARIN SODIUM [Suspect]
     Route: 058
     Dates: start: 20080612, end: 20080726
  3. LEVOTHYROXINE SODIUM [Concomitant]
     Indication: DRUG USE FOR UNKNOWN INDICATION
     Route: 065
  4. OMEPRAZOLE [Concomitant]
     Indication: DRUG USE FOR UNKNOWN INDICATION
     Route: 065
  5. ASPIRIN [Concomitant]
     Indication: DRUG USE FOR UNKNOWN INDICATION
     Route: 065
  6. CARVEDILOL [Concomitant]
     Indication: DRUG USE FOR UNKNOWN INDICATION
     Route: 065

REACTIONS (15)
  - BURNING SENSATION [None]
  - CARDIO-RESPIRATORY ARREST [None]
  - CHEST DISCOMFORT [None]
  - DIZZINESS [None]
  - DYSPHAGIA [None]
  - DYSPNOEA [None]
  - FEELING HOT [None]
  - HYPOAESTHESIA [None]
  - HYPOTENSION [None]
  - OEDEMA MOUTH [None]
  - PARAESTHESIA [None]
  - PHARYNGEAL OEDEMA [None]
  - RASH [None]
  - RESPIRATORY FAILURE [None]
  - SYNCOPE [None]
